FAERS Safety Report 5007318-2 (Version None)
Quarter: 2006Q2

REPORT INFORMATION
  Report Type: 
  Country: None (occurrence: None)
  Receive Date: 20060517
  Receipt Date: 20060509
  Transmission Date: 20061013
  Serious: Yes (Hospitalization)
  Sender: FDA-Public Use
  Company Number: TPA2006A00797

PATIENT
  Age: 63 Year
  Sex: Male
  Weight: 164.6557 kg

DRUGS (14)
  1. ACTOS [Suspect]
     Indication: DIABETES MELLITUS NON-INSULIN-DEPENDENT
     Dosage: SEE IMAGE
     Route: 048
     Dates: start: 20021112, end: 20050509
  2. ACTOS [Suspect]
     Indication: DIABETES MELLITUS NON-INSULIN-DEPENDENT
     Dosage: SEE IMAGE
     Route: 048
     Dates: start: 20050509, end: 20060506
  3. METOLAZONE (METOLAZONE) (5 MILLIGRAM) [Suspect]
     Indication: FLUID RETENTION
     Dosage: 5MG, 3 X A WEEK, PER ORAL
     Route: 048
     Dates: start: 20050501
  4. NOVOLOG 70/30 (INSULIN ASPART, PROTAMINE INSULIN ASPART) [Concomitant]
  5. NOVOLOG (INSULIN ASPART (INTERNATIONAL UNIT) [Concomitant]
  6. LANTUS [Concomitant]
  7. LITHIUM CARBONATE [Concomitant]
  8. TORSEMIDE [Concomitant]
  9. LEVOTHYROXINE SODIUM [Concomitant]
  10. MAG OXIDE (MAGNESIUM OXIDE) [Concomitant]
  11. KLOR-CON [Concomitant]
  12. EANINE (ALL OTHER THERAPEUTIC PRODUCTS) [Concomitant]
  13. ALTACE [Concomitant]
  14. DIAZEPAM [Concomitant]

REACTIONS (4)
  - DEHYDRATION [None]
  - DIARRHOEA [None]
  - DIVERTICULITIS [None]
  - WEIGHT INCREASED [None]
